FAERS Safety Report 18001450 (Version 1)
Quarter: 2020Q3

REPORT INFORMATION
  Report Type: Spontaneous
  Country: FR (occurrence: FR)
  Receive Date: 20200709
  Receipt Date: 20200709
  Transmission Date: 20201103
  Serious: Yes (Hospitalization)
  Sender: FDA-Public Use
  Company Number: FR-INDIVIOR US-INDV-125492-2020

PATIENT
  Age: 38 Year
  Sex: Male

DRUGS (1)
  1. SUBUTEX [Suspect]
     Active Substance: BUPRENORPHINE HYDROCHLORIDE
     Indication: DRUG ABUSE
     Dosage: UNK
     Route: 042
     Dates: start: 1999

REACTIONS (4)
  - Intentional product use issue [Unknown]
  - Arterial haemorrhage [Recovered/Resolved]
  - Intentional product misuse [Not Recovered/Not Resolved]
  - Aneurysm [Recovering/Resolving]

NARRATIVE: CASE EVENT DATE: 1999
